FAERS Safety Report 4382112-4 (Version None)
Quarter: 2004Q2

REPORT INFORMATION
  Report Type: 
  Country: None (occurrence: None)
  Receive Date: 20040603
  Receipt Date: 20030329
  Transmission Date: 20050107
  Serious: Yes (Hospitalization)
  Sender: FDA-Public Use
  Company Number: 200312995US

PATIENT
  Sex: Female

DRUGS (4)
  1. LOVENOX [Suspect]
     Indication: ATRIAL FIBRILLATION
  2. STEROIDS NOS [Concomitant]
  3. BLOOD PRESSURE MEDICATION NOS [Concomitant]
  4. DIABETES MEDICATION NOS [Concomitant]

REACTIONS (3)
  - BACK PAIN [None]
  - PAIN [None]
  - RETROPERITONEAL HAEMATOMA [None]
